FAERS Safety Report 13597061 (Version 1)
Quarter: 2017Q2

REPORT INFORMATION
  Report Type: Report from Study
  Country: CN (occurrence: CN)
  Receive Date: 20170531
  Receipt Date: 20170531
  Transmission Date: 20170830
  Serious: Yes (Other)
  Sender: FDA-Public Use
  Company Number: PHHY2017CN078442

PATIENT
  Age: 44 Year
  Sex: Male

DRUGS (137)
  1. MYFORTIC [Suspect]
     Active Substance: MYCOPHENOLATE SODIUM
     Indication: RENAL TRANSPLANT
     Dosage: 1440 MG, QD
     Route: 065
     Dates: start: 20160704, end: 20160711
  2. CALCIUM [Concomitant]
     Active Substance: CALCIUM
     Dosage: 20 ML, QD
     Route: 042
     Dates: start: 20160719, end: 20160719
  3. SODIUM BICARBONATE/ 10 %SODIUM BICARBONATE [Concomitant]
     Dosage: 125 UNK, UNK
     Route: 042
     Dates: start: 20160716, end: 20160716
  4. ALLOPURINOL. [Concomitant]
     Active Substance: ALLOPURINOL
     Indication: BLOOD URIC ACID INCREASED
     Dosage: 100 MG, TID
     Route: 042
     Dates: start: 20160722, end: 20160726
  5. ASPIRIN. [Concomitant]
     Active Substance: ASPIRIN
     Indication: PRODUCT USED FOR UNKNOWN INDICATION
     Dosage: 100 UNK, UNK
     Route: 048
     Dates: start: 20060707, end: 20160708
  6. CEFOPERAZONE SODIUM AND TAZOBACTAM SODIUM [Concomitant]
     Active Substance: CEFOPERAZONE\TAZOBACTAM SODIUM
     Indication: PRODUCT USED FOR UNKNOWN INDICATION
     Dosage: 2500 MG, QD
     Route: 058
     Dates: start: 20160704, end: 20160704
  7. CINEPAZIDE MALEATE [Concomitant]
     Active Substance: CINEPAZIDE MALEATE
     Indication: ISCHAEMIC HEART DISEASE PROPHYLAXIS
     Dosage: 640 MG, QD
     Route: 042
     Dates: start: 20160704, end: 20160718
  8. DOPAMINE [Concomitant]
     Active Substance: DOPAMINE\DOPAMINE HYDROCHLORIDE
     Indication: POLYURIA
     Dosage: 5 MG, QD
     Route: 042
     Dates: start: 20160704, end: 20160704
  9. FUROSEMIDE. [Concomitant]
     Active Substance: FUROSEMIDE
     Dosage: 40 MG, QD
     Route: 042
     Dates: start: 20160718, end: 20160718
  10. ISOSORBIDE MONONITRATE. [Concomitant]
     Active Substance: ISOSORBIDE MONONITRATE
     Dosage: 30 ML, QD
     Route: 042
     Dates: start: 20160711, end: 20160712
  11. ISOSORBIDE MONONITRATE. [Concomitant]
     Active Substance: ISOSORBIDE MONONITRATE
     Dosage: 30 ML, QD
     Route: 042
     Dates: start: 20160714, end: 20160715
  12. ISOSORBIDE MONONITRATE. [Concomitant]
     Active Substance: ISOSORBIDE MONONITRATE
     Indication: PRODUCT USED FOR UNKNOWN INDICATION
     Dosage: 50 MG, BID
     Route: 048
     Dates: start: 20160714
  13. LEVAMLODIPINE BESILATE [Concomitant]
     Active Substance: LEVAMLODIPINE BESYLATE
     Indication: HYPERTENSION
     Dosage: 70 MG, QD
     Route: 042
     Dates: start: 20160707, end: 20160707
  14. LIDOCAINE. [Concomitant]
     Active Substance: LIDOCAINE
     Indication: POLYURIA
     Dosage: 10 ML, QD
     Route: 042
     Dates: start: 20160704, end: 20160704
  15. PHOSPHOCREATINE SODIUM [Concomitant]
     Active Substance: PHOSPHOCREATINE SODIUM
     Indication: ISCHAEMIC HEART DISEASE PROPHYLAXIS
     Dosage: 2000 MG, QD
     Route: 042
     Dates: start: 20160704, end: 20160706
  16. TORASEMIDE [Concomitant]
     Active Substance: TORSEMIDE
     Dosage: 20 UNK, UNK
     Route: 042
     Dates: start: 20160719, end: 20160720
  17. TORASEMIDE [Concomitant]
     Active Substance: TORSEMIDE
     Dosage: 40 MG, QD
     Route: 042
     Dates: start: 20160724, end: 20160724
  18. MYFORTIC [Suspect]
     Active Substance: MYCOPHENOLATE SODIUM
     Indication: IMMUNOSUPPRESSANT DRUG THERAPY
     Dosage: 1080 MG, QD
     Route: 065
     Dates: start: 20160712
  19. PREDNISONE. [Suspect]
     Active Substance: PREDNISONE
     Dosage: 50 MG, QD
     Route: 065
     Dates: start: 20160707, end: 20160707
  20. SODIUM BICARBONATE/ 10 %SODIUM BICARBONATE [Concomitant]
     Dosage: 125 UNK, UNK
     Route: 042
     Dates: start: 20160718, end: 20160718
  21. HUMAN ALBUMIN /20% HUMAN BLOOD ALBUMIN [Concomitant]
     Dosage: 100 ML, QD
     Route: 042
     Dates: start: 20160719, end: 20160719
  22. GLUCOSE [Concomitant]
     Active Substance: DEXTROSE
     Dosage: 60 ML, QD
     Route: 042
     Dates: start: 20160718, end: 20160718
  23. DEZOCINE [Concomitant]
     Active Substance: DEZOCINE
     Indication: ANALGESIC THERAPY
     Dosage: 30 MG, QD
     Route: 042
     Dates: start: 20160704, end: 20160704
  24. FUROSEMIDE. [Concomitant]
     Active Substance: FUROSEMIDE
     Dosage: 40 MG, QD
     Route: 042
     Dates: start: 20160720, end: 20160720
  25. HEPARIN SODIUM. [Concomitant]
     Active Substance: HEPARIN SODIUM
     Indication: PRODUCT USED FOR UNKNOWN INDICATION
     Dosage: 1.25 UNK, QD
     Route: 042
     Dates: start: 20160704, end: 20160704
  26. ISOSORBIDE MONONITRATE. [Concomitant]
     Active Substance: ISOSORBIDE MONONITRATE
     Dosage: 30 ML, QD
     Route: 042
     Dates: start: 20160714, end: 20160714
  27. MAGNESIUM ISOGLYCYRRHIZINATE [Concomitant]
     Active Substance: MAGNESIUM ISOGLYCYRRHIZINATE
     Indication: PRODUCT USED FOR UNKNOWN INDICATION
     Dosage: 150 MG, QD
     Route: 042
     Dates: start: 20160704, end: 20160706
  28. PHENOBARBITAL. [Concomitant]
     Active Substance: PHENOBARBITAL
     Indication: PRODUCT USED FOR UNKNOWN INDICATION
     Dosage: 100 MG, QD
     Route: 030
     Dates: start: 20160704, end: 20160704
  29. PHENTOLAMINE MESYLATE. [Concomitant]
     Active Substance: PHENTOLAMINE MESYLATE
     Dosage: 5 MG, QD
     Route: 042
     Dates: start: 20160706, end: 20160706
  30. PHOSPHOCREATINE SODIUM [Concomitant]
     Active Substance: PHOSPHOCREATINE SODIUM
     Dosage: 2000 MG, QD
     Route: 042
     Dates: start: 20160706, end: 20160722
  31. POTASSIUM CHLORIDE. [Concomitant]
     Active Substance: POTASSIUM CHLORIDE
     Dosage: 2000 MG, QID
     Route: 048
     Dates: start: 20160711, end: 20160711
  32. GLUTATHIONE/REDUCED GLUTATHIONE [Concomitant]
     Indication: PRODUCT USED FOR UNKNOWN INDICATION
     Dosage: 400 MG, TID
     Route: 048
     Dates: start: 20160725
  33. RIBOFLAVIN SODIUM PHOSPHATE [Concomitant]
     Indication: PRODUCT USED FOR UNKNOWN INDICATION
     Dosage: 20 MG, QD
     Route: 042
     Dates: start: 20160704, end: 20160706
  34. RIBOFLAVIN SODIUM PHOSPHATE [Concomitant]
     Dosage: 20 MG, QD
     Route: 042
     Dates: start: 20160707, end: 20160714
  35. PREDNISONE. [Suspect]
     Active Substance: PREDNISONE
     Dosage: 30 MG, QD
     Route: 065
     Dates: start: 20160709, end: 20160709
  36. TACROLIMUS. [Suspect]
     Active Substance: TACROLIMUS
     Indication: IMMUNOSUPPRESSANT DRUG THERAPY
     Dosage: 6 MG, QD
     Route: 065
     Dates: start: 20160707, end: 20160711
  37. CALCIUM [Concomitant]
     Active Substance: CALCIUM
     Dosage: 30 ML, QD
     Route: 042
     Dates: start: 20160718, end: 20160718
  38. SODIUM BICARBONATE/ 10 %SODIUM BICARBONATE [Concomitant]
     Dosage: 250 UNK, UNK
     Route: 042
     Dates: start: 20160719, end: 20160719
  39. GLUCOSE [Concomitant]
     Active Substance: DEXTROSE
     Dosage: 60 ML, QD
     Route: 042
     Dates: start: 20160719, end: 20160719
  40. ALPROSTADIL. [Concomitant]
     Active Substance: ALPROSTADIL
     Dosage: 20 UG, QD
     Route: 042
     Dates: start: 20160718, end: 20160718
  41. DOPAMINE [Concomitant]
     Active Substance: DOPAMINE\DOPAMINE HYDROCHLORIDE
     Dosage: 5 MG, QD
     Route: 065
     Dates: start: 20160706, end: 20160706
  42. FUROSEMIDE. [Concomitant]
     Active Substance: FUROSEMIDE
     Dosage: 60 MG, QD
     Route: 042
     Dates: start: 20160707, end: 20160707
  43. ISOSORBIDE MONONITRATE. [Concomitant]
     Active Substance: ISOSORBIDE MONONITRATE
     Dosage: 30 ML, QD
     Route: 042
     Dates: start: 20160713, end: 20160713
  44. SCOPOLAMINE [Concomitant]
     Active Substance: SCOPOLAMINE
     Indication: PRODUCT USED FOR UNKNOWN INDICATION
     Dosage: 0.3 MG, QD
     Route: 030
     Dates: start: 20160704, end: 20160704
  45. TIGECYCLINE. [Concomitant]
     Active Substance: TIGECYCLINE
     Dosage: 50 MG, BID
     Route: 042
     Dates: start: 20160705, end: 20160718
  46. PREDNISONE. [Suspect]
     Active Substance: PREDNISONE
     Dosage: 20 MG, QD
     Route: 065
     Dates: start: 20160710, end: 20160710
  47. CALCIUM [Concomitant]
     Active Substance: CALCIUM
     Indication: MINERAL SUPPLEMENTATION
     Dosage: 30 ML, QD
     Route: 042
     Dates: start: 20160704, end: 20160704
  48. HUMAN ALBUMIN /20% HUMAN BLOOD ALBUMIN [Concomitant]
     Indication: SUPPLEMENTATION THERAPY
     Dosage: 100 ML, QD
     Route: 042
     Dates: start: 20160704, end: 20160704
  49. HUMAN ALBUMIN /20% HUMAN BLOOD ALBUMIN [Concomitant]
     Dosage: 100 ML, BID
     Route: 042
     Dates: start: 20160704, end: 20160711
  50. HUMAN ALBUMIN /20% HUMAN BLOOD ALBUMIN [Concomitant]
     Dosage: 50 ML, QD
     Route: 042
     Dates: start: 20160715, end: 20160716
  51. ALPROSTADIL. [Concomitant]
     Active Substance: ALPROSTADIL
     Indication: PRODUCT USED FOR UNKNOWN INDICATION
     Dosage: 20 UG, QD
     Route: 042
     Dates: start: 20160704, end: 20160712
  52. CEFOPERAZONA/SULBACTAM [Concomitant]
     Active Substance: CEFOPERAZONE SODIUM\SULBACTAM SODIUM
     Indication: PRODUCT USED FOR UNKNOWN INDICATION
     Dosage: 1500 MG, QD
     Route: 058
     Dates: start: 20160711, end: 20160711
  53. CLOPIDOGREL [Concomitant]
     Active Substance: CLOPIDOGREL BISULFATE
     Indication: ISCHAEMIC HEART DISEASE PROPHYLAXIS
     Dosage: 75 MG, BID
     Route: 048
     Dates: start: 20160707, end: 20160708
  54. FUROSEMIDE. [Concomitant]
     Active Substance: FUROSEMIDE
     Dosage: 40 MG, QD
     Route: 042
     Dates: start: 20160708, end: 20160726
  55. INSULIN [Concomitant]
     Active Substance: INSULIN NOS
     Dosage: 14 IU, QD
     Route: 042
     Dates: start: 20160718, end: 20160718
  56. LINEZOLID. [Concomitant]
     Active Substance: LINEZOLID
     Indication: PRODUCT USED FOR UNKNOWN INDICATION
     Dosage: 600 MG, BID
     Route: 048
     Dates: start: 20160718, end: 20160721
  57. HEPARIN SODIUM/LOW MOLECULE HEPARIN SODIUM [Concomitant]
     Dosage: 40 MG, BID
     Route: 058
     Dates: start: 20160709, end: 20160717
  58. NITROGLYCERIN. [Concomitant]
     Active Substance: NITROGLYCERIN
     Indication: ISCHAEMIC HEART DISEASE PROPHYLAXIS
     Dosage: 20 UNK, UNK
     Route: 042
     Dates: start: 20160704, end: 20160704
  59. TORASEMIDE [Concomitant]
     Active Substance: TORSEMIDE
     Dosage: 20 MG, QD
     Route: 042
     Dates: start: 20160713, end: 20160713
  60. PREDNISONE. [Suspect]
     Active Substance: PREDNISONE
     Indication: IMMUNOSUPPRESSANT DRUG THERAPY
     Dosage: 50 MG, QD
     Route: 065
     Dates: start: 20160706, end: 20160706
  61. PREDNISONE. [Suspect]
     Active Substance: PREDNISONE
     Dosage: 10 MG, QD
     Route: 065
     Dates: start: 20160711, end: 20160714
  62. TACROLIMUS. [Suspect]
     Active Substance: TACROLIMUS
     Dosage: 6 MG, QD
     Route: 065
     Dates: start: 20160723
  63. ALANYL GLUTAMINE [Concomitant]
     Active Substance: ALANYL GLUTAMINE
     Indication: NUTRITIONAL SUPPLEMENTATION
     Dosage: 2000 MG, QD
     Route: 065
     Dates: start: 20060705, end: 20160707
  64. CALCIUM [Concomitant]
     Active Substance: CALCIUM
     Dosage: 20 ML, QD
     Route: 042
     Dates: start: 20160718, end: 20160718
  65. POTASSIUM/10 % POTASSIUM [Concomitant]
     Indication: MINERAL SUPPLEMENTATION
     Dosage: 30 ML, QD
     Route: 048
     Dates: start: 20160708, end: 20160708
  66. POTASSIUM/10 % POTASSIUM [Concomitant]
     Dosage: 20 ML, QD
     Route: 048
     Dates: start: 20160709, end: 20160709
  67. SODIUM BICARBONATE/ 10 %SODIUM BICARBONATE [Concomitant]
     Indication: MINERAL SUPPLEMENTATION
     Dosage: 250 ML, QD
     Route: 042
     Dates: start: 20160704, end: 20160704
  68. AMPHOMYCIN/AMPHOMYCIN B LIPOSOME [Concomitant]
     Dosage: 30 MG, QD
     Route: 042
     Dates: start: 20160711, end: 20160718
  69. ATORVASTATIN CALCIUM. [Concomitant]
     Active Substance: ATORVASTATIN CALCIUM
     Indication: LIPIDS INCREASED
     Dosage: 20 MG, QD
     Route: 048
     Dates: start: 20160707
  70. INSULIN [Concomitant]
     Active Substance: INSULIN NOS
     Dosage: 14 IU, QD
     Route: 042
     Dates: start: 20160719, end: 20160719
  71. HEPARIN SODIUM/LOW MOLECULE HEPARIN SODIUM [Concomitant]
     Indication: THROMBOSIS PROPHYLAXIS
     Dosage: 40 MG, QD
     Route: 058
     Dates: start: 20160707, end: 20160707
  72. POTASSIUM CHLORIDE. [Concomitant]
     Active Substance: POTASSIUM CHLORIDE
     Dosage: 2000 MG, BID
     Route: 042
     Dates: start: 20160712, end: 20160712
  73. RECOMBINANT HUMAN ERYTHROPOIETIN [Concomitant]
     Active Substance: ERYTHROPOIETIN
     Dosage: 1 WU, QD
     Route: 058
     Dates: start: 20160723, end: 20160724
  74. TIGECYCLINE. [Concomitant]
     Active Substance: TIGECYCLINE
     Indication: PRODUCT USED FOR UNKNOWN INDICATION
     Dosage: 100 MG, QD
     Route: 042
     Dates: start: 20160704, end: 20160704
  75. BASILIXIMAB [Suspect]
     Active Substance: BASILIXIMAB
     Indication: IMMUNOSUPPRESSANT DRUG THERAPY
  76. TACROLIMUS. [Suspect]
     Active Substance: TACROLIMUS
     Dosage: 7 MG, QD
     Route: 065
     Dates: start: 20160716, end: 20160718
  77. CALCIUM [Concomitant]
     Active Substance: CALCIUM
     Dosage: 10 ML, QD
     Route: 042
     Dates: start: 20160712, end: 20160712
  78. HUMAN ALBUMIN /20% HUMAN BLOOD ALBUMIN [Concomitant]
     Dosage: 100 ML, QD
     Route: 042
     Dates: start: 20160722, end: 20160723
  79. AMPHOMYCIN/AMPHOMYCIN B LIPOSOME [Concomitant]
     Indication: PRODUCT USED FOR UNKNOWN INDICATION
     Dosage: 30 MG, QD
     Route: 042
     Dates: start: 20060704, end: 20160710
  80. CEFOPERAZONA/SULBACTAM [Concomitant]
     Active Substance: CEFOPERAZONE SODIUM\SULBACTAM SODIUM
     Indication: SKIN TEST
     Dosage: 3000 MG, BID
     Route: 042
     Dates: start: 20160711, end: 20160711
  81. DIAMMONIUM GLYCYRRHIZINATE [Concomitant]
     Active Substance: HERBALS
     Indication: PRODUCT USED FOR UNKNOWN INDICATION
     Dosage: 100 MG, BID
     Route: 048
     Dates: start: 20160725, end: 20160727
  82. GANCICLOVIR. [Concomitant]
     Active Substance: GANCICLOVIR
     Indication: PRODUCT USED FOR UNKNOWN INDICATION
     Dosage: 50 MG, QD
     Route: 048
     Dates: start: 20160726
  83. INDAPAMIDE. [Concomitant]
     Active Substance: INDAPAMIDE
     Indication: HYPERTENSION
     Dosage: 1.5 MG, QD
     Route: 042
     Dates: start: 20160724, end: 20160726
  84. ISOSORBIDE MONONITRATE. [Concomitant]
     Active Substance: ISOSORBIDE MONONITRATE
     Dosage: 30 ML, QD
     Route: 042
     Dates: start: 20160710, end: 20160711
  85. LANSOPRAZOLE. [Concomitant]
     Active Substance: LANSOPRAZOLE
     Indication: GASTRITIS PROPHYLAXIS
     Dosage: 60 MG, BID
     Route: 042
     Dates: start: 20160704, end: 20160710
  86. HEPARIN SODIUM/LOW MOLECULE HEPARIN SODIUM [Concomitant]
     Dosage: 40 MG, QD
     Route: 042
     Dates: start: 20160708, end: 20160708
  87. NITROPRUSSIDE [Concomitant]
     Active Substance: NITROPRUSSIDE
     Indication: BLOOD PRESSURE MEASUREMENT
     Dosage: 50 MG, QD
     Route: 042
     Dates: start: 20060108, end: 20060108
  88. OMEPRAZOL [Concomitant]
     Active Substance: OMEPRAZOLE
     Indication: GASTRITIS PROPHYLAXIS
     Dosage: 10 MG, BID
     Route: 048
     Dates: start: 20160712
  89. POTASSIUM CHLORIDE. [Concomitant]
     Active Substance: POTASSIUM CHLORIDE
     Indication: MINERAL SUPPLEMENTATION
     Dosage: 2000 MG, TID
     Route: 048
     Dates: start: 20160709, end: 20160709
  90. POTASSIUM CHLORIDE. [Concomitant]
     Active Substance: POTASSIUM CHLORIDE
     Dosage: 2000 MG, BID
     Route: 048
     Dates: start: 20160710, end: 20160710
  91. POTASSIUM CHLORIDE. [Concomitant]
     Active Substance: POTASSIUM CHLORIDE
     Dosage: 2000 MG, BID
     Route: 048
     Dates: start: 20160713, end: 20160713
  92. RECOMBINANT HUMAN ERYTHROPOIETIN [Concomitant]
     Active Substance: ERYTHROPOIETIN
     Dosage: 1 WU, QD
     Route: 058
     Dates: start: 20160719, end: 20160719
  93. RECOMBINANT HUMAN ERYTHROPOIETIN [Concomitant]
     Active Substance: ERYTHROPOIETIN
     Dosage: 1 WU, QD
     Route: 042
     Dates: start: 20160721, end: 20160721
  94. TORASEMIDE [Concomitant]
     Active Substance: TORSEMIDE
     Dosage: 20 UNK, UNK
     Route: 042
     Dates: start: 20160714, end: 20160714
  95. TORASEMIDE [Concomitant]
     Active Substance: TORSEMIDE
     Dosage: 40 UNK, UNK
     Route: 042
     Dates: start: 20160718, end: 20160718
  96. PREDNISONE. [Suspect]
     Active Substance: PREDNISONE
     Dosage: 40 MG, QD
     Route: 065
     Dates: start: 20160708, end: 20160708
  97. METHYLPREDNISOLONE. [Suspect]
     Active Substance: METHYLPREDNISOLONE
     Indication: IMMUNOSUPPRESSION
     Dosage: 500 MG, QD
     Route: 065
     Dates: start: 20160704, end: 20160704
  98. TACROLIMUS. [Suspect]
     Active Substance: TACROLIMUS
     Dosage: 3 MG, QD
     Route: 065
     Dates: start: 20160712, end: 20160715
  99. TACROLIMUS. [Suspect]
     Active Substance: TACROLIMUS
     Dosage: 5 MG, QD
     Route: 065
     Dates: start: 20160719, end: 20160722
  100. AMBROXOL HYDROCHLORIDE [Concomitant]
     Active Substance: AMBROXOL HYDROCHLORIDE
     Indication: PRODUCT USED FOR UNKNOWN INDICATION
     Dosage: 210 MG, QD
     Route: 042
     Dates: start: 20160704, end: 20160712
  101. CEFOPERAZONE SODIUM AND TAZOBACTAM SODIUM [Concomitant]
     Active Substance: CEFOPERAZONE\TAZOBACTAM SODIUM
     Indication: SKIN TEST
     Dosage: 5000 MG, BID
     Route: 042
     Dates: start: 20160704, end: 20160711
  102. FUROSEMIDE. [Concomitant]
     Active Substance: FUROSEMIDE
     Indication: POLYURIA
     Dosage: 100 MG, QD
     Route: 042
     Dates: start: 20160704, end: 20160704
  103. FUROSEMIDE. [Concomitant]
     Active Substance: FUROSEMIDE
     Dosage: 60 MG, QD
     Route: 042
     Dates: start: 20160706, end: 20160706
  104. ISOSORBIDE MONONITRATE. [Concomitant]
     Active Substance: ISOSORBIDE MONONITRATE
     Dosage: 30 ML, QD
     Route: 042
     Dates: start: 20160709, end: 20160709
  105. ISOSORBIDE MONONITRATE. [Concomitant]
     Active Substance: ISOSORBIDE MONONITRATE
     Dosage: 30 ML, QD
     Route: 042
     Dates: start: 20160711, end: 20160711
  106. LANSOPRAZOLE. [Concomitant]
     Active Substance: LANSOPRAZOLE
     Dosage: 69 MG, QD
     Route: 042
     Dates: start: 20060111, end: 20160712
  107. LEVAMLODIPINE BESILATE [Concomitant]
     Active Substance: LEVAMLODIPINE BESYLATE
     Dosage: 5 MG, QD
     Route: 042
     Dates: start: 20160708, end: 20160726
  108. HEPARIN SODIUM/LOW MOLECULE HEPARIN SODIUM [Concomitant]
     Dosage: 40 MG, QD
     Route: 058
     Dates: start: 20160707, end: 20160708
  109. MAGNESIUM ISOGLYCYRRHIZINATE [Concomitant]
     Active Substance: MAGNESIUM ISOGLYCYRRHIZINATE
     Dosage: 150 MG, QD
     Route: 042
     Dates: start: 20160707, end: 20160714
  110. METOPROLOL. [Concomitant]
     Active Substance: METOPROLOL
     Indication: HYPERTENSION
     Dosage: 47.5 MG, BID
     Route: 048
     Dates: start: 20160707
  111. MICAFUNGIN SODIUM [Concomitant]
     Active Substance: MICAFUNGIN SODIUM
     Dosage: 50 MG, QD
     Route: 065
     Dates: start: 20160725, end: 20160725
  112. MOXIFLOXACIN. [Concomitant]
     Active Substance: MOXIFLOXACIN
     Indication: PRODUCT USED FOR UNKNOWN INDICATION
     Dosage: 400 MG, QD
     Route: 042
     Dates: start: 20160704, end: 20160704
  113. MUCOPOLYSACCHARIDE POLYSULFURIC ACID ESTER [Concomitant]
     Indication: SKIN DISORDER
     Dosage: 14000 MG, QD
     Route: 065
     Dates: start: 20160716, end: 20160716
  114. RECOMBINANT HUMAN ERYTHROPOIETIN [Concomitant]
     Active Substance: ERYTHROPOIETIN
     Indication: PRODUCT USED FOR UNKNOWN INDICATION
     Dosage: 1 WU, QD
     Route: 058
     Dates: start: 20160713, end: 20160713
  115. SODIUM PHOSPHATE [Concomitant]
     Active Substance: SODIUM PHOSPHATE
     Indication: INTESTINAL OBSTRUCTION
     Dosage: 130 ML, QD
     Route: 042
     Dates: start: 20160707, end: 20160707
  116. TORASEMIDE [Concomitant]
     Active Substance: TORSEMIDE
     Indication: POLYURIA
     Dosage: 20 MG, BID
     Route: 042
     Dates: start: 20160709, end: 20160709
  117. TORASEMIDE [Concomitant]
     Active Substance: TORSEMIDE
     Dosage: 20 UNK, UNK
     Route: 042
     Dates: start: 20160711, end: 20160711
  118. TRIMETAZIDIN [Concomitant]
     Indication: ISCHAEMIC HEART DISEASE PROPHYLAXIS
     Dosage: 35 MG, QD
     Route: 048
     Dates: start: 20160707
  119. BASILIXIMAB [Suspect]
     Active Substance: BASILIXIMAB
     Indication: RENAL TRANSPLANT
     Dosage: 20 MG, QD
     Route: 065
     Dates: start: 20160704, end: 20160704
  120. SODIUM BICARBONATE/ 10 %SODIUM BICARBONATE [Concomitant]
     Dosage: 250 UNK, UNK
     Route: 042
     Dates: start: 20160718, end: 20160718
  121. HUMAN ALBUMIN /20% HUMAN BLOOD ALBUMIN [Concomitant]
     Dosage: 100 ML, QD
     Route: 042
     Dates: start: 20160712, end: 20160714
  122. GLUCOSE [Concomitant]
     Active Substance: DEXTROSE
     Indication: BLOOD POTASSIUM INCREASED
     Dosage: 60 ML, QD
     Route: 042
     Dates: start: 20160704, end: 20160704
  123. ASPIRIN. [Concomitant]
     Active Substance: ASPIRIN
     Dosage: 100 MG, QD
     Route: 048
     Dates: start: 20160708
  124. CLOPIDOGREL [Concomitant]
     Active Substance: CLOPIDOGREL BISULFATE
     Dosage: 75 MG, QD
     Route: 048
     Dates: start: 20160708
  125. FOLIC ACID. [Concomitant]
     Active Substance: FOLIC ACID
     Indication: ANAEMIA
     Dosage: 5 MG, TID
     Route: 048
     Dates: start: 20160719, end: 20160726
  126. FUROSEMIDE. [Concomitant]
     Active Substance: FUROSEMIDE
     Dosage: 40 MG, QD
     Route: 042
     Dates: start: 20160721, end: 20160722
  127. FUROSEMIDE. [Concomitant]
     Active Substance: FUROSEMIDE
     Dosage: 60 MG, QD
     Route: 042
     Dates: start: 20160721, end: 20160722
  128. INSULIN [Concomitant]
     Active Substance: INSULIN NOS
     Indication: BLOOD POTASSIUM INCREASED
     Dosage: 16 IU, QD
     Route: 042
     Dates: start: 20160704, end: 20160704
  129. INSULIN [Concomitant]
     Active Substance: INSULIN NOS
     Dosage: 16 IU, QD
     Route: 042
     Dates: start: 20160718, end: 20160718
  130. IRON SUCROSE [Concomitant]
     Active Substance: IRON SUCROSE
     Indication: ANAEMIA
     Dosage: 100 MG, QD
     Route: 042
     Dates: start: 20160719, end: 20160723
  131. ISOSORBIDE MONONITRATE. [Concomitant]
     Active Substance: ISOSORBIDE MONONITRATE
     Indication: PRODUCT USED FOR UNKNOWN INDICATION
     Dosage: 30 ML, QD
     Route: 042
     Dates: start: 20160708, end: 20160709
  132. ISOSORBIDE MONONITRATE. [Concomitant]
     Active Substance: ISOSORBIDE MONONITRATE
     Dosage: 30 ML, QD
     Route: 042
     Dates: start: 20160712, end: 20160712
  133. MICAFUNGIN SODIUM [Concomitant]
     Active Substance: MICAFUNGIN SODIUM
     Indication: PRODUCT USED FOR UNKNOWN INDICATION
     Dosage: 100 MG, QD
     Route: 042
     Dates: start: 20160718, end: 20160721
  134. NITROGLYCERIN. [Concomitant]
     Active Substance: NITROGLYCERIN
     Dosage: 20 UNK, UNK
     Route: 042
     Dates: start: 20160706, end: 20160707
  135. PHENTOLAMINE MESYLATE. [Concomitant]
     Active Substance: PHENTOLAMINE MESYLATE
     Indication: POLYURIA
     Dosage: 5 MG, QD
     Route: 042
     Dates: start: 20160704, end: 20160704
  136. TORASEMIDE [Concomitant]
     Active Substance: TORSEMIDE
     Dosage: 20 MG, QD
     Route: 042
     Dates: start: 20160710, end: 20160710
  137. TORASEMIDE [Concomitant]
     Active Substance: TORSEMIDE
     Dosage: 20 MG, BID
     Route: 042
     Dates: start: 20160712, end: 20160712

REACTIONS (10)
  - Platelet count decreased [Unknown]
  - Incision site pain [Recovered/Resolved]
  - Lymphocyte count decreased [Unknown]
  - White blood cell count increased [Unknown]
  - Blood glucose increased [Unknown]
  - Haemoglobin decreased [Unknown]
  - Blood urea increased [Unknown]
  - Bilirubin conjugated increased [Unknown]
  - Glomerular filtration rate decreased [Unknown]
  - Neutrophil count increased [Unknown]

NARRATIVE: CASE EVENT DATE: 20160704
